FAERS Safety Report 9661412 (Version 1)
Quarter: 2013Q4

REPORT INFORMATION
  Report Type: Spontaneous
  Country: US (occurrence: US)
  Receive Date: 20131031
  Receipt Date: 20131031
  Transmission Date: 20140711
  Serious: No
  Sender: FDA-Public Use
  Company Number: US-PURDUE-USA-2010-0053109

PATIENT
  Sex: Male

DRUGS (3)
  1. OXYCONTIN (NDA 22-272) [Suspect]
     Indication: SPINAL LAMINECTOMY
     Dosage: 120 MG, TID
     Dates: start: 20100921
  2. OXYCONTIN (NDA 22-272) [Suspect]
     Indication: BACK INJURY
  3. OXYCODONE [Concomitant]
     Indication: BREAKTHROUGH PAIN
     Dosage: 30 MG, Q6H
     Dates: start: 2000

REACTIONS (3)
  - Drug withdrawal syndrome [Unknown]
  - Muscle spasms [Unknown]
  - Hyperhidrosis [Unknown]
